FAERS Safety Report 14911196 (Version 3)
Quarter: 2018Q3

REPORT INFORMATION
  Report Type: Report from Study
  Country: US (occurrence: US)
  Receive Date: 20180518
  Receipt Date: 20180806
  Transmission Date: 20181010
  Serious: Yes (Death, Other)
  Sender: FDA-Public Use
  Company Number: PHEH2018US017802

PATIENT
  Sex: Male

DRUGS (1)
  1. ENTRESTO [Suspect]
     Active Substance: SACUBITRIL\VALSARTAN
     Indication: ATRIAL FIBRILLATION
     Route: 048

REACTIONS (7)
  - Upper respiratory tract infection [Unknown]
  - Heart valve incompetence [Unknown]
  - Drug ineffective for unapproved indication [Unknown]
  - Sudden death [Fatal]
  - Dyspnoea [Unknown]
  - Hypotension [Unknown]
  - Heart rate increased [Unknown]
